FAERS Safety Report 25938344 (Version 2)
Quarter: 2025Q4

REPORT INFORMATION
  Report Type: Spontaneous
  Country: GB (occurrence: GB)
  Receive Date: 20251019
  Receipt Date: 20251106
  Transmission Date: 20260119
  Serious: Yes (Other)
  Sender: IPSEN BIOPHARMACEUTICALS, INC.
  Company Number: GB-ADVANZ PHARMA-202408007112

PATIENT
  Age: 71 Year
  Sex: Male
  Weight: 64 kg

DRUGS (10)
  1. LANREOTIDE ACETATE [Suspect]
     Active Substance: LANREOTIDE ACETATE
     Indication: Neuroendocrine tumour
     Dosage: 120 MG, EVERY 28 DAYS (DEEP SUBCUTANEOUS)
     Route: 058
     Dates: start: 20240729
  2. LANREOTIDE ACETATE [Suspect]
     Active Substance: LANREOTIDE ACETATE
     Dosage: 120 MG, EVERY 28 DAYS (DEEP SUBCUTANEOUS)
     Route: 058
     Dates: start: 20241216
  3. LANREOTIDE [Suspect]
     Active Substance: LANREOTIDE
     Indication: Neuroendocrine tumour
     Dosage: 90 MG EVERY 28 DAYS (E28D) DEEP SUBCUTANEOUS
     Route: 058
  4. LANREOTIDE [Suspect]
     Active Substance: LANREOTIDE
     Dosage: 90 MG EVERY 28 DAYS (E28D) DEEP SUBCUTANEOUS (BUTTOCK (RIGHT) )
     Route: 058
     Dates: start: 20250923
  5. METFORMIN [Concomitant]
     Active Substance: METFORMIN HYDROCHLORIDE
     Indication: Diabetes mellitus
     Dosage: 500 MG, BID (500MG X TWICE DAILY)
  6. LOSARTAN [Concomitant]
     Active Substance: LOSARTAN
     Dosage: 25 MG, QD
  7. OMEPRAZOLE [Concomitant]
     Active Substance: OMEPRAZOLE
     Dosage: 40 MG, BID (2 X20MG X TWICE DAILY)
  8. CREON [Concomitant]
     Active Substance: PANCRELIPASE AMYLASE\PANCRELIPASE LIPASE\PANCRELIPASE PROTEASE
     Dosage: UNK (4 WITH EACH MEAL WEEK OF LANREOTIDE INJECTION, 2 WITH EACH MEAL OTHERWISE)
  9. INSULIN NOS [Concomitant]
     Active Substance: INSULIN NOS
     Indication: Diabetes mellitus
     Dosage: UNK
  10. DAPAGLIFLOZIN [Concomitant]
     Active Substance: DAPAGLIFLOZIN
     Dosage: 5 MG, QD

REACTIONS (11)
  - Renal impairment [Unknown]
  - Product use issue [Unknown]
  - Frequent bowel movements [Unknown]
  - Defaecation urgency [Unknown]
  - Blood pressure decreased [Unknown]
  - Glycosylated haemoglobin increased [Unknown]
  - Abdominal discomfort [Unknown]
  - Diarrhoea [Recovered/Resolved]
  - Fatigue [Unknown]
  - Diarrhoea [Not Recovered/Not Resolved]
  - Diarrhoea [Recovering/Resolving]

NARRATIVE: CASE EVENT DATE: 20241216
